FAERS Safety Report 5742730-5 (Version None)
Quarter: 2008Q2

REPORT INFORMATION
  Report Type: 
  Country: None (occurrence: None)
  Receive Date: 20080519
  Receipt Date: 20080513
  Transmission Date: 20081010
  Serious: Yes (Other)
  Sender: FDA-Public Use
  Company Number: B0520895A

PATIENT
  Age: 38 Year

DRUGS (1)
  1. CEFUROXIME [Suspect]
     Indication: COUGH
     Dosage: 500MG TWICE PER DAY
     Route: 048
     Dates: start: 20080423, end: 20080423

REACTIONS (5)
  - ANAPHYLACTIC REACTION [None]
  - DYSPNOEA [None]
  - HYPOTENSION [None]
  - PRESYNCOPE [None]
  - URTICARIA [None]
